FAERS Safety Report 12180087 (Version 3)
Quarter: 2016Q2

REPORT INFORMATION
  Report Type: Spontaneous
  Country: US (occurrence: US)
  Receive Date: 20160315
  Receipt Date: 20160420
  Transmission Date: 20160815
  Serious: No
  Sender: FDA-Public Use
  Company Number: US-PFIZER INC-2016150102

PATIENT
  Age: 55 Year
  Sex: Female
  Weight: 92 kg

DRUGS (4)
  1. XALATAN [Suspect]
     Active Substance: LATANOPROST
     Indication: GLAUCOMA
     Dosage: 1 DROP IN EACH EYE EVERY NIGHT
     Route: 047
     Dates: start: 1999
  2. XALATAN [Suspect]
     Active Substance: LATANOPROST
     Dosage: 1-2 GTT ,QD-BID
     Dates: start: 2000
  3. CORTEF [Suspect]
     Active Substance: HYDROCORTISONE
     Indication: HYPOPITUITARISM
     Dosage: 40 MG IN THE MORNING, 20 MG IN THE AFTERNOON ACCORDING TO HOW SHE FEELS
     Route: 048
     Dates: start: 2003
  4. CORTEF [Suspect]
     Active Substance: HYDROCORTISONE
     Indication: ADRENAL INSUFFICIENCY

REACTIONS (2)
  - Memory impairment [Not Recovered/Not Resolved]
  - Product use issue [Unknown]
